FAERS Safety Report 11847303 (Version 1)
Quarter: 2015Q4

REPORT INFORMATION
  Report Type: Spontaneous
  Country: US (occurrence: US)
  Receive Date: 20151217
  Receipt Date: 20151217
  Transmission Date: 20160305
  Serious: No
  Sender: FDA-Public Use
  Company Number: US-ROCHE-1507872

PATIENT
  Sex: Female
  Weight: 60.38 kg

DRUGS (5)
  1. TAMIFLU [Suspect]
     Active Substance: OSELTAMIVIR PHOSPHATE
     Indication: INFLUENZA
     Route: 048
     Dates: start: 20141211, end: 20141212
  2. HUMALOG [Concomitant]
     Active Substance: INSULIN LISPRO
     Indication: DIABETES MELLITUS
     Route: 058
  3. SYNTHROID [Concomitant]
     Active Substance: LEVOTHYROXINE SODIUM
  4. HUMALOG [Concomitant]
     Active Substance: INSULIN LISPRO
     Dosage: NIGHT
     Route: 058
  5. LEVOTHYROXINE. [Concomitant]
     Active Substance: LEVOTHYROXINE
     Indication: HYPERTHYROIDISM

REACTIONS (4)
  - Pruritus [Recovering/Resolving]
  - Mouth swelling [Recovering/Resolving]
  - Peripheral swelling [Recovered/Resolved]
  - Malaise [Unknown]
